FAERS Safety Report 24322633 (Version 1)
Quarter: 2024Q3

REPORT INFORMATION
  Report Type: Spontaneous
  Country: US (occurrence: US)
  Receive Date: 20240916
  Receipt Date: 20240916
  Transmission Date: 20241016
  Serious: No
  Sender: AMGEN
  Company Number: US-AMGEN-USASP2024183012

PATIENT
  Sex: Female

DRUGS (7)
  1. RAVICTI [Suspect]
     Active Substance: GLYCEROL PHENYLBUTYRATE
     Indication: Urea cycle disorder
     Dosage: 4 MILLILITE, (1. 1 GRAMS/M L 25M L BT)
     Route: 048
     Dates: start: 201310
  2. RAVICTI [Suspect]
     Active Substance: GLYCEROL PHENYLBUTYRATE
     Indication: Ornithine transcarbamoylase deficiency
  3. RAVICTI [Suspect]
     Active Substance: GLYCEROL PHENYLBUTYRATE
     Indication: Amino acid metabolism disorder
  4. RAVICTI [Suspect]
     Active Substance: GLYCEROL PHENYLBUTYRATE
     Indication: Cystinosis
  5. VITAMINS [Concomitant]
     Active Substance: VITAMINS
     Dosage: UNK
  6. CITRULLINE 1000 [Concomitant]
     Dosage: 1 G/4 G POWD PACK
  7. CARNITOR [Concomitant]
     Active Substance: LEVOCARNITINE
     Dosage: 330 MILLIGRAM

REACTIONS (1)
  - Hyperphagia [Unknown]
